FAERS Safety Report 23814627 (Version 3)
Quarter: 2024Q2

REPORT INFORMATION
  Report Type: Report from Study
  Country: US (occurrence: US)
  Receive Date: 20240503
  Receipt Date: 20240513
  Transmission Date: 20240715
  Serious: Yes (Hospitalization, Other)
  Sender: FDA-Public Use
  Company Number: US-ABBVIE-5742028

PATIENT
  Sex: Male
  Weight: 77 kg

DRUGS (2)
  1. HUMIRA [Suspect]
     Active Substance: ADALIMUMAB
     Indication: Crohn^s disease
     Dosage: CITRATE FREE?FORM STRENGTH: 40 MG
     Route: 058
     Dates: start: 20150815
  2. METFORMIN [Suspect]
     Active Substance: METFORMIN HYDROCHLORIDE
     Indication: Product used for unknown indication
     Route: 065
     Dates: start: 202402, end: 202404

REACTIONS (6)
  - Mucous stools [Recovering/Resolving]
  - Diarrhoea haemorrhagic [Recovering/Resolving]
  - Crohn^s disease [Not Recovered/Not Resolved]
  - Large intestinal haemorrhage [Unknown]
  - Therapeutic product effect decreased [Unknown]
  - Antibody test abnormal [Unknown]

NARRATIVE: CASE EVENT DATE: 20240101
